FAERS Safety Report 5716038-8 (Version None)
Quarter: 2008Q2

REPORT INFORMATION
  Report Type: 
  Country: None (occurrence: None)
  Receive Date: 20080424
  Receipt Date: 20080424
  Transmission Date: 20081010
  Serious: Yes (Hospitalization)
  Sender: FDA-Public Use
  Company Number: A0724434A

PATIENT
  Age: 50 Year
  Sex: Female
  Weight: 47 kg

DRUGS (4)
  1. NICODERM CQ [Suspect]
     Indication: SMOKING CESSATION THERAPY
     Dosage: 21MG UNKNOWN
     Route: 062
     Dates: start: 20080301
  2. XANAX [Concomitant]
  3. LORAZEPAM [Concomitant]
  4. HYDROCODONE BITARTRATE [Concomitant]

REACTIONS (11)
  - ASTHENIA [None]
  - CATHETER SITE HAEMATOMA [None]
  - DRUG INEFFECTIVE [None]
  - EMPHYSEMA [None]
  - INTENTIONAL DRUG MISUSE [None]
  - LOSS OF CONSCIOUSNESS [None]
  - MUSCULOSKELETAL STIFFNESS [None]
  - PAIN IN EXTREMITY [None]
  - PARAESTHESIA [None]
  - PHARMACEUTICAL PRODUCT COMPLAINT [None]
  - PHOTOPSIA [None]
